FAERS Safety Report 5762392-0 (Version None)
Quarter: 2008Q2

REPORT INFORMATION
  Report Type: 
  Country: None (occurrence: None)
  Receive Date: 20080609
  Receipt Date: 20080603
  Transmission Date: 20081010
  Serious: Yes (Other)
  Sender: FDA-Public Use
  Company Number: US-SOLVAY-00208001176

PATIENT
  Age: 45 Year
  Sex: Male
  Weight: 101.5 kg

DRUGS (10)
  1. METHADONE HCL [Concomitant]
     Indication: PAIN
     Dosage: DAILY DOSE: 60 MILLIGRAM(S)
     Route: 048
     Dates: start: 20070101
  2. ANDROGEL [Suspect]
     Indication: BLOOD TESTOSTERONE DECREASED
     Dosage: DAILY DOSE: 5 GRAM(S) VIA PUMP
     Route: 062
     Dates: start: 20071201
  3. PERCOCET [Concomitant]
     Indication: PAIN
     Dosage: DAILY DOSE: 10/325 PRN
     Route: 048
     Dates: start: 20070101
  4. SOMA [Concomitant]
     Indication: PAIN
     Dosage: DAILY DOSE:  350 MG PRN
     Route: 048
     Dates: start: 20070101
  5. CYMBALTA [Concomitant]
     Indication: DEPRESSION
     Dosage: DAILY DOSE:  UNKNOWN
     Route: 048
  6. CYMBALTA [Concomitant]
     Dosage: DAILY DOSE: 90 MILLIGRAM(S)
     Route: 048
     Dates: start: 20080101
  7. NEXIUM [Concomitant]
     Indication: GASTROOESOPHAGEAL REFLUX DISEASE
     Dosage: DAILY DOSE:  UNKNOWN
     Route: 048
  8. PRILOSEC [Concomitant]
     Indication: GASTROOESOPHAGEAL REFLUX DISEASE
     Dosage: DAILY DOSE:  UNKNOWN
     Route: 048
     Dates: start: 19980101
  9. METOPROLOL TARTRATE [Concomitant]
     Indication: HYPERTENSION
     Dosage: DAILY DOSE:  UNKNOWN
     Route: 048
     Dates: start: 19820101
  10. IBUROFEN [Concomitant]
     Indication: PAIN
     Dosage: DAILY DOSE:  800 MG PRN
     Route: 048

REACTIONS (2)
  - FEELING ABNORMAL [None]
  - SUICIDAL IDEATION [None]
